FAERS Safety Report 18386570 (Version 2)
Quarter: 2020Q4

REPORT INFORMATION
  Report Type: Spontaneous
  Country: US (occurrence: US)
  Receive Date: 20201015
  Receipt Date: 20201113
  Transmission Date: 20210114
  Serious: No
  Sender: FDA-Public Use
  Company Number: US-BAYER-2020-220232

PATIENT
  Age: 51 Year
  Sex: Female

DRUGS (1)
  1. MIRALAX [Suspect]
     Active Substance: POLYETHYLENE GLYCOL 3350
     Indication: GASTROINTESTINAL DISORDER
     Dosage: HALF A CAP FULL TO THREE QUARTERS OF A CAP FULL
     Route: 048
     Dates: end: 2020

REACTIONS (4)
  - Dysgeusia [Not Recovered/Not Resolved]
  - Incorrect product dosage form administered [None]
  - Product odour abnormal [None]
  - Product taste abnormal [None]
